FAERS Safety Report 6991458-2 (Version None)
Quarter: 2010Q3

REPORT INFORMATION
  Report Type: 
  Country: None (occurrence: None)
  Receive Date: 20100916
  Receipt Date: 20090827
  Transmission Date: 20110219
  Serious: No
  Sender: FDA-Public Use
  Company Number: US-WYE-H10748809

PATIENT
  Sex: Female

DRUGS (9)
  1. PRISTIQ [Suspect]
     Indication: DEPRESSION
     Route: 048
     Dates: start: 20081201
  2. PRISTIQ [Suspect]
     Route: 048
  3. PRILOSEC [Concomitant]
  4. PSEUDOEPHEDRINE HYDROCHLORIDE [Concomitant]
  5. LORAZEPAM [Concomitant]
  6. HYDROXYZINE [Concomitant]
  7. DEXCHLORPHENIRAMINE MALEATE [Concomitant]
  8. AMLODIPINE BESYLATE [Concomitant]
  9. RHINOCORT [Concomitant]

REACTIONS (2)
  - DIZZINESS [None]
  - DRUG WITHDRAWAL SYNDROME [None]
